FAERS Safety Report 8263300-3 (Version None)
Quarter: 2012Q2

REPORT INFORMATION
  Report Type: 
  Country: None (occurrence: None)
  Receive Date: 20120405
  Receipt Date: 20120330
  Transmission Date: 20120825
  Serious: Yes (Hospitalization)
  Sender: FDA-Public Use
  Company Number: DE-B.I. PHARMACEUTICALS,INC./RIDGEFIELD-2012-DE-00962DE

PATIENT
  Sex: Male

DRUGS (3)
  1. INDAPAMIDE [Concomitant]
  2. PRADAXA [Suspect]
     Indication: ATRIAL FIBRILLATION
     Dosage: 220 MG
     Dates: start: 20111205, end: 20120104
  3. BISOPROLOL FUMARATE [Concomitant]
     Dosage: 7.5 MG

REACTIONS (1)
  - CEREBROVASCULAR ACCIDENT [None]
